FAERS Safety Report 9053370 (Version 2)
Quarter: 2013Q1

REPORT INFORMATION
  Report Type: Spontaneous
  Country: FR (occurrence: FR)
  Receive Date: 20130208
  Receipt Date: 20130215
  Transmission Date: 20140127
  Serious: Yes (Hospitalization)
  Sender: FDA-Public Use
  Company Number: FR-MERCK-1302FRA001433

PATIENT
  Age: 81 None
  Sex: Male

DRUGS (6)
  1. CHIBRO-PROSCAR [Suspect]
     Indication: PROSTATIC ADENOMA
     Dosage: 5 MG, QD
     Route: 048
  2. DEPAKINE [Suspect]
     Indication: EPILEPSY
     Dosage: 500 MG, BID
     Route: 048
     Dates: start: 200803, end: 20080403
  3. COVERSYL [Suspect]
     Indication: HYPERTENSION
     Dosage: 4 MG, QD
     Route: 048
  4. SKELID [Suspect]
     Indication: PRODUCT USED FOR UNKNOWN INDICATION
     Dosage: 400 MG, QD
     Route: 048
  5. KARDEGIC [Suspect]
     Indication: PROPHYLAXIS
     Dosage: 75 MG, QD
     Route: 048
  6. TAHOR [Suspect]
     Indication: HYPERCHOLESTEROLAEMIA
     Dosage: 80 MG, QD
     Route: 048

REACTIONS (5)
  - Fall [Recovered/Resolved with Sequelae]
  - Dependence [Not Recovered/Not Resolved]
  - Disease progression [None]
  - Wound [None]
  - Disorientation [None]
